FAERS Safety Report 8135314-5 (Version None)
Quarter: 2012Q1

REPORT INFORMATION
  Report Type: 
  Country: None (occurrence: None)
  Receive Date: 20120214
  Receipt Date: 20120207
  Transmission Date: 20120608
  Serious: Yes (Other)
  Sender: FDA-Public Use
  Company Number: US-ROCHE-1012221

PATIENT
  Sex: Female

DRUGS (6)
  1. CYCLOPHOSPHAMIDE [Suspect]
     Indication: BREAST CANCER
     Dosage: OVER 30 MIN ON DAY 1, Q21D FOR 4 CYCLES
     Route: 042
     Dates: start: 20040212
  2. PACLITAXEL [Suspect]
     Indication: BREAST CANCER
     Dosage: OVER 1 HR QW ON DAY 1, FOR 12 WEEKS, STARTING ON WEEK 13
     Route: 042
  3. HERCEPTIN [Suspect]
     Indication: BREAST CANCER
     Dosage: OVER 30 MIN ON DAY 1 FOR 52 WEKS
     Route: 042
  4. DOXORUBICIN HCL [Suspect]
     Indication: BREAST CANCER
     Dosage: DAY 1, Q21D FOR 4 CYCLES
     Route: 042
     Dates: start: 20040212
  5. HERCEPTIN [Suspect]
     Dosage: LOADING DOSE, OVER 90 MINS
     Route: 042
  6. TAMOXIFEN CITRATE [Suspect]
     Indication: BREAST CANCER
     Dosage: 5 WKS AFTER LAST  TAXOL DOSE FOR 5 YEARS
     Route: 048

REACTIONS (1)
  - ACUTE CORONARY SYNDROME [None]
